FAERS Safety Report 4505976-X (Version None)
Quarter: 2004Q4

REPORT INFORMATION
  Report Type: 
  Country: None (occurrence: None)
  Receive Date: 20041025
  Receipt Date: 20031219
  Transmission Date: 20050328
  Serious: Yes (Other)
  Sender: FDA-Public Use
  Company Number: US-JNJFOC-20031000995

PATIENT
  Age: 65 Year
  Sex: Female
  Weight: 90.7194 kg

DRUGS (5)
  1. REMICADE [Suspect]
     Indication: RHEUMATOID ARTHRITIS
     Dosage: 500 MG, 1 IN 6 WEEK
     Dates: start: 20010725, end: 20031001
  2. METHOTREXATE [Concomitant]
  3. FOSAMAX [Concomitant]
  4. DYAZIKDE (DYAZIDE) [Concomitant]
  5. CELEBREX [Concomitant]

REACTIONS (1)
  - MALIGNANT MELANOMA [None]
